FAERS Safety Report 8112331-2 (Version None)
Quarter: 2012Q1

REPORT INFORMATION
  Report Type: 
  Country: None (occurrence: None)
  Receive Date: 20120203
  Receipt Date: 20111004
  Transmission Date: 20120608
  Serious: No
  Sender: FDA-Public Use
  Company Number: US-ASTRAZENECA-2011SE59667

PATIENT
  Age: 73 Year
  Sex: Female

DRUGS (13)
  1. ATENOLOL [Concomitant]
  2. CALCIUM 500/VITAMIN D [Concomitant]
  3. FERROUS SULFATE TAB [Concomitant]
  4. LISINOPRIL [Concomitant]
  5. FUROSEMIDE [Concomitant]
  6. HYDROXYCHLOROQUINE SULFATE [Concomitant]
  7. VANDETANIB [Suspect]
     Indication: THYROID CANCER
     Route: 048
  8. VENTOLIN HFA [Concomitant]
  9. CALCITRIOL [Concomitant]
  10. AMLODIPINE BESYLATE [Concomitant]
  11. LEVOTHYROXINE SODIUM [Concomitant]
  12. OMEPRAZOLE [Concomitant]
  13. DIAZEPAM [Concomitant]

REACTIONS (3)
  - NAUSEA [None]
  - DIARRHOEA [None]
  - CHILLS [None]
